FAERS Safety Report 4381763-0 (Version None)
Quarter: 2004Q2

REPORT INFORMATION
  Report Type: 
  Country: None (occurrence: None)
  Receive Date: 20040603
  Receipt Date: 20030812
  Transmission Date: 20050107
  Serious: Yes (Other)
  Sender: FDA-Public Use
  Company Number: 200317347US

PATIENT
  Sex: Female

DRUGS (6)
  1. LOVENOX [Suspect]
     Dosage: 30 MG
  2. LOVENOX [Suspect]
     Dosage: 80 MG Q12H SC
     Route: 058
  3. WARFARIN SODIUM [Concomitant]
  4. POTASSIUM [Concomitant]
  5. FUROSEMIDE [Concomitant]
  6. KETOCONAZOLE [Concomitant]

REACTIONS (1)
  - THROMBOSIS [None]
